FAERS Safety Report 24607621 (Version 3)
Quarter: 2024Q4

REPORT INFORMATION
  Report Type: Spontaneous
  Country: AT (occurrence: AT)
  Receive Date: 20241112
  Receipt Date: 20241114
  Transmission Date: 20250115
  Serious: Yes (Other)
  Sender: ASTELLAS
  Company Number: AT-ASTELLAS-2024-AER-017667

PATIENT
  Sex: Male

DRUGS (6)
  1. XTANDI [Suspect]
     Active Substance: ENZALUTAMIDE
     Indication: Metastases to bone
     Route: 065
     Dates: start: 201610, end: 201806
  2. XTANDI [Suspect]
     Active Substance: ENZALUTAMIDE
     Indication: Prostatic specific antigen increased
  3. DOCETAXEL [Concomitant]
     Active Substance: DOCETAXEL
     Indication: Metastases to bone
     Dosage: 6 CYCLES
     Route: 065
     Dates: start: 201806, end: 201810
  4. DOCETAXEL [Concomitant]
     Active Substance: DOCETAXEL
     Indication: Prostatic specific antigen increased
  5. FIRMAGON [Concomitant]
     Active Substance: DEGARELIX ACETATE
     Indication: Product used for unknown indication
     Route: 065
     Dates: start: 201412
  6. XGEVA [Concomitant]
     Active Substance: DENOSUMAB
     Indication: Product used for unknown indication
     Route: 065
     Dates: start: 201412

REACTIONS (1)
  - Malignant neoplasm progression [Unknown]
